FAERS Safety Report 7331305-2 (Version None)
Quarter: 2011Q1

REPORT INFORMATION
  Report Type: 
  Country: None (occurrence: None)
  Receive Date: 20110224
  Receipt Date: 20110209
  Transmission Date: 20110831
  Serious: No
  Sender: FDA-Public Use
  Company Number: 027241

PATIENT
  Sex: Female

DRUGS (1)
  1. KEPPRA [Suspect]
     Dosage: (500 MG BID ORAL)
     Route: 048

REACTIONS (2)
  - KIDNEY INFECTION [None]
  - VERTIGO [None]
